FAERS Safety Report 23821118 (Version 1)
Quarter: 2024Q2

REPORT INFORMATION
  Report Type: Report from Study
  Country: RU (occurrence: RU)
  Receive Date: 20240506
  Receipt Date: 20240506
  Transmission Date: 20240715
  Serious: Yes (Other)
  Sender: FDA-Public Use
  Company Number: RU-Merck Healthcare KGaA-2024023447

PATIENT
  Sex: Male

DRUGS (2)
  1. BAVENCIO [Suspect]
     Active Substance: AVELUMAB
     Indication: Metastatic renal cell carcinoma
  2. AXITINIB [Concomitant]
     Active Substance: AXITINIB
     Indication: Metastatic renal cell carcinoma

REACTIONS (1)
  - Hypotension [Recovered/Resolved]
